FAERS Safety Report 5987086-8 (Version None)
Quarter: 2008Q4

REPORT INFORMATION
  Report Type: 
  Country: None (occurrence: None)
  Receive Date: 20081209
  Receipt Date: 20080717
  Transmission Date: 20090506
  Serious: No
  Sender: FDA-Public Use
  Company Number: A0739258A

PATIENT
  Sex: Male

DRUGS (2)
  1. AVANDAMET [Suspect]
  2. GLIMEPIRIDE [Suspect]

REACTIONS (2)
  - DRUG INEFFECTIVE [None]
  - RASH GENERALISED [None]
